FAERS Safety Report 22343792 (Version 1)
Quarter: 2023Q2

REPORT INFORMATION
  Report Type: Spontaneous
  Country: CN (occurrence: None)
  Receive Date: 20230519
  Receipt Date: 20230519
  Transmission Date: 20230722
  Serious: Yes (Death, Other)
  Sender: FDA-Public Use
  Company Number: CN-ROCHE-3349999

PATIENT

DRUGS (8)
  1. MABTHERA [Suspect]
     Active Substance: RITUXIMAB
     Indication: Chronic lymphocytic leukaemia
     Dosage: FIRST 1 OF CYCLE 1, 28-DAY CYCLES
     Route: 042
  2. MABTHERA [Suspect]
     Active Substance: RITUXIMAB
     Indication: Lymphocytic lymphoma
     Dosage: FIRST 1 OF CYCLE 2~6, 28-DAY CYCLES
     Route: 042
  3. FLUDARABINE [Concomitant]
     Active Substance: FLUDARABINE PHOSPHATE
     Indication: Chronic lymphocytic leukaemia
     Dosage: DAY 1 TO DAY 5 ON EACH CYCLE
     Route: 048
  4. FLUDARABINE [Concomitant]
     Active Substance: FLUDARABINE PHOSPHATE
     Indication: Lymphocytic lymphoma
  5. CYCLOPHOSPHAMIDE [Concomitant]
     Active Substance: CYCLOPHOSPHAMIDE
     Indication: Chronic lymphocytic leukaemia
     Route: 048
  6. CYCLOPHOSPHAMIDE [Concomitant]
     Active Substance: CYCLOPHOSPHAMIDE
     Indication: Lymphocytic lymphoma
  7. IBRUTINIB [Concomitant]
     Active Substance: IBRUTINIB
     Indication: Chronic lymphocytic leukaemia
     Dosage: 6 YEARS
     Route: 048
  8. IBRUTINIB [Concomitant]
     Active Substance: IBRUTINIB
     Indication: Lymphocytic lymphoma

REACTIONS (72)
  - Cardiac failure acute [Fatal]
  - Myocardial ischaemia [Fatal]
  - Retroperitoneal haemorrhage [Fatal]
  - Infection [Fatal]
  - Cardiac death [Fatal]
  - White blood cell count decreased [Unknown]
  - Anaemia [Unknown]
  - Fatigue [Unknown]
  - Contusion [Unknown]
  - Haemorrhage [Unknown]
  - Haemorrhage intracranial [Unknown]
  - Hypertension [Unknown]
  - Atrial fibrillation [Unknown]
  - Arrhythmia [Unknown]
  - Febrile neutropenia [Unknown]
  - Abdominal pain [Unknown]
  - Abdominal distension [Unknown]
  - Hepatic function abnormal [Unknown]
  - Acute coronary syndrome [Unknown]
  - Adenoviral hepatitis [Unknown]
  - Adenovirus test positive [Unknown]
  - Administration site discomfort [Unknown]
  - Adverse drug reaction [Unknown]
  - Alanine aminotransferase increased [Unknown]
  - Blood alkaline phosphatase increased [Unknown]
  - Amnesia [Unknown]
  - Proctalgia [Unknown]
  - Anxiety [Unknown]
  - Aortic dissection [Unknown]
  - Aplasia pure red cell [Unknown]
  - Appendicitis [Unknown]
  - Arthralgia [Unknown]
  - Arthritis [Unknown]
  - Ascites [Unknown]
  - Aspartate aminotransferase increased [Unknown]
  - Atelectasis [Unknown]
  - Atrial fibrillation [Unknown]
  - Autoimmune haemolytic anaemia [Unknown]
  - Back pain [Unknown]
  - Blood bilirubin increased [Unknown]
  - Bronchiectasis [Unknown]
  - Dermatitis bullous [Unknown]
  - Campylobacter gastroenteritis [Unknown]
  - Cardio-respiratory arrest [Fatal]
  - Chest pain [Unknown]
  - Musculoskeletal chest pain [Unknown]
  - Chills [Unknown]
  - Cholecystitis [Unknown]
  - Confusional state [Unknown]
  - Conjunctival cyst [Unknown]
  - Constipation [Unknown]
  - Cough [Unknown]
  - Cystitis [Unknown]
  - Cytopenia [Unknown]
  - Dehydration [Unknown]
  - Dental caries [Unknown]
  - Dizziness [Unknown]
  - Dyspepsia [Unknown]
  - Dyspnoea [Unknown]
  - Enteritis [Unknown]
  - Enterocolitis infectious [Unknown]
  - Escherichia infection [Unknown]
  - Febrile convulsion [Unknown]
  - Pyrexia [Unknown]
  - Influenza like illness [Unknown]
  - Fungal infection [Unknown]
  - Gamma-glutamyltransferase increased [Unknown]
  - Giant cell arteritis [Unknown]
  - Haemolytic anaemia [Unknown]
  - Haemorrhage urinary tract [Unknown]
  - Haemorrhage [Unknown]
  - Hypotension [Unknown]
